FAERS Safety Report 7921626-4 (Version None)
Quarter: 2011Q4

REPORT INFORMATION
  Report Type: 
  Country: None (occurrence: None)
  Receive Date: 20111117
  Receipt Date: 20110615
  Transmission Date: 20120403
  Serious: No
  Sender: FDA-Public Use
  Company Number: US-BAYER-2011-073385

PATIENT
  Age: 4 Year
  Sex: Female

DRUGS (1)
  1. DESONATE [Suspect]

REACTIONS (1)
  - HEADACHE [None]
